FAERS Safety Report 4812106-3 (Version None)
Quarter: 2005Q4

REPORT INFORMATION
  Report Type: 
  Country: None (occurrence: None)
  Receive Date: 20051028
  Receipt Date: 20040120
  Transmission Date: 20060501
  Serious: No
  Sender: FDA-Public Use
  Company Number: US-GLAXOSMITHKLINE-A0494269A

PATIENT
  Age: 11 Year
  Sex: Male
  Weight: 47.7 kg

DRUGS (4)
  1. ADVAIR DISKUS 100/50 [Suspect]
     Indication: ASTHMA
     Dosage: 1PUFF TWICE PER DAY
     Route: 055
     Dates: start: 20031223, end: 20040104
  2. ALBUTEROL [Concomitant]
     Route: 055
  3. SINGULAIR [Concomitant]
     Route: 065
  4. CLARINEX [Concomitant]
     Route: 065

REACTIONS (1)
  - CUSHINGOID [None]
